FAERS Safety Report 16105789 (Version 2)
Quarter: 2019Q2

REPORT INFORMATION
  Report Type: Spontaneous
  Country: AT (occurrence: AT)
  Receive Date: 20190322
  Receipt Date: 20190507
  Transmission Date: 20190711
  Serious: Yes (Other)
  Sender: FDA-Public Use
  Company Number: AT-PFIZER INC-2019121593

PATIENT
  Age: 34 Year
  Sex: Male

DRUGS (2)
  1. SYMBIOFLOR 1 [Suspect]
     Active Substance: ENTEROCOCCUS FAECALIS
     Indication: SINUSITIS
     Dosage: 20 GTT, (EVERY 8 HRS)
     Route: 048
     Dates: start: 20181201, end: 20181205
  2. DOXYCYCLINE HYCLATE. [Suspect]
     Active Substance: DOXYCYCLINE HYCLATE
     Indication: PERIODONTITIS
     Dosage: UNK

REACTIONS (2)
  - Constipation [Unknown]
  - Diarrhoea haemorrhagic [Not Recovered/Not Resolved]

NARRATIVE: CASE EVENT DATE: 20181205
